FAERS Safety Report 4432110-7 (Version None)
Quarter: 2004Q3

REPORT INFORMATION
  Report Type: 
  Country: None (occurrence: None)
  Receive Date: 20040819
  Receipt Date: 20040805
  Transmission Date: 20050211
  Serious: Yes (Death)
  Sender: FDA-Public Use
  Company Number: DEU-2004-0000934

PATIENT
  Age: 78 Year
  Sex: Female
  Weight: 59 kg

DRUGS (5)
  1. OXY CR TAB 20 MG (OXY CR TAB 20 MG)CR TABLET [Suspect]
     Indication: PAIN
     Dosage: 20 MG, BID, ORAL
     Route: 048
     Dates: start: 20040417
  2. ACTONEL [Concomitant]
  3. COLECALCIFEROL (COLECALCIFEROL) [Concomitant]
  4. GABAPENTIN [Concomitant]
  5. LACTULOSE [Concomitant]

REACTIONS (1)
  - ACUTE ABDOMEN [None]
